FAERS Safety Report 25056844 (Version 1)
Quarter: 2025Q1

REPORT INFORMATION
  Report Type: Report from Study
  Country: CA (occurrence: CA)
  Receive Date: 20250310
  Receipt Date: 20250310
  Transmission Date: 20250409
  Serious: Yes (Other)
  Sender: JOHNSON AND JOHNSON
  Company Number: CA-JNJFOC-20241045525

PATIENT
  Age: 42 Year
  Sex: Female

DRUGS (9)
  1. REMICADE [Suspect]
     Active Substance: INFLIXIMAB
     Indication: Crohn^s disease
     Route: 041
  2. REMICADE [Suspect]
     Active Substance: INFLIXIMAB
     Route: 041
  3. REMICADE [Suspect]
     Active Substance: INFLIXIMAB
     Route: 041
  4. REMICADE [Suspect]
     Active Substance: INFLIXIMAB
     Route: 041
  5. CORTISONE [Suspect]
     Active Substance: CORTISONE
     Indication: Product used for unknown indication
     Route: 048
  6. CORTISONE [Suspect]
     Active Substance: CORTISONE
     Route: 048
  7. CORTISONE [Suspect]
     Active Substance: CORTISONE
     Dosage: THERAPY START DATE : -DEC-2024
     Route: 048
  8. PREDNISONE [Concomitant]
     Active Substance: PREDNISONE
  9. AZATHIOPRINE [Concomitant]
     Active Substance: AZATHIOPRINE
     Indication: Product used for unknown indication

REACTIONS (16)
  - Ear infection [Recovering/Resolving]
  - Sinusitis [Recovering/Resolving]
  - Crohn^s disease [Unknown]
  - Weight decreased [Unknown]
  - Influenza like illness [Recovering/Resolving]
  - Drug hypersensitivity [Recovering/Resolving]
  - Obstruction [Unknown]
  - Fatigue [Unknown]
  - Diarrhoea [Not Recovered/Not Resolved]
  - Abdominal pain [Not Recovered/Not Resolved]
  - Nausea [Unknown]
  - Drug ineffective [Unknown]
  - COVID-19 [Not Recovered/Not Resolved]
  - Depressed mood [Unknown]
  - Sleep disorder [Unknown]
  - Off label use [Unknown]

NARRATIVE: CASE EVENT DATE: 20240901
